FAERS Safety Report 9095390 (Version 2)
Quarter: 2013Q1

REPORT INFORMATION
  Report Type: Spontaneous
  Country: US (occurrence: None)
  Receive Date: 20130123
  Receipt Date: 20130207
  Transmission Date: 20140127
  Serious: Yes (Other)
  Sender: FDA-Public Use
  Company Number: CLCY20130004

PATIENT
  Age: 57 Year
  Sex: Male
  Weight: 131.54 kg

DRUGS (9)
  1. COLCRYS 0.6 MG [Suspect]
     Indication: GOUT
     Route: 048
     Dates: start: 20130109
  2. ALLOPURINOL [Suspect]
     Route: 048
     Dates: start: 20121030, end: 20121102
  3. INDOMETHACIN [Suspect]
     Route: 048
     Dates: start: 20121030, end: 20121103
  4. ULORIC [Suspect]
     Route: 048
     Dates: start: 20121214
  5. PREDNISONE [Suspect]
     Route: 048
  6. IBUPROFEN [Concomitant]
  7. NORVASC [Concomitant]
  8. ACCUPRIL [Concomitant]
  9. VICODIN [Concomitant]

REACTIONS (8)
  - Swelling face [None]
  - Pain in jaw [None]
  - Swollen tongue [None]
  - Lip swelling [None]
  - Eye swelling [None]
  - Gout [None]
  - Drug ineffective [None]
  - Diarrhoea [None]
